FAERS Safety Report 7964529-1 (Version None)
Quarter: 2011Q4

REPORT INFORMATION
  Report Type: 
  Country: None (occurrence: None)
  Receive Date: 20111208
  Receipt Date: 20111201
  Transmission Date: 20120403
  Serious: No
  Sender: FDA-Public Use
  Company Number: PHHY2011JP106907

PATIENT
  Age: 72 Year
  Sex: Male

DRUGS (2)
  1. STEROIDS NOS [Concomitant]
  2. TASIGNA [Suspect]
     Indication: CHRONIC MYELOID LEUKAEMIA
     Dosage: 400 MG, DAILY
     Route: 048
     Dates: start: 20110926, end: 20111002

REACTIONS (1)
  - TINNITUS [None]
